FAERS Safety Report 8547303-7 (Version None)
Quarter: 2012Q3

REPORT INFORMATION
  Report Type: 
  Country: None (occurrence: None)
  Receive Date: 20120727
  Receipt Date: 20120316
  Transmission Date: 20120928
  Serious: No
  Sender: FDA-Public Use
  Company Number: US-ASTRAZENECA-2012SE18214

PATIENT
  Age: 45 Year
  Sex: Male
  Weight: 99.8 kg

DRUGS (6)
  1. SEROQUEL [Suspect]
     Route: 048
  2. SEROQUEL [Suspect]
     Route: 048
     Dates: start: 20120301
  3. DEPAKOTE [Concomitant]
  4. SEROQUEL [Suspect]
     Route: 048
  5. KLONOPIN [Concomitant]
  6. SEROQUEL [Suspect]
     Route: 048
     Dates: start: 20120301, end: 20120301

REACTIONS (5)
  - APHAGIA [None]
  - DRUG INEFFECTIVE [None]
  - WEIGHT DECREASED [None]
  - ANXIETY [None]
  - INSOMNIA [None]
